FAERS Safety Report 5749970-X (Version None)
Quarter: 2008Q2

REPORT INFORMATION
  Report Type: 
  Country: None (occurrence: None)
  Receive Date: 20080527
  Receipt Date: 20080514
  Transmission Date: 20081010
  Serious: Yes (Other)
  Sender: FDA-Public Use
  Company Number: CA-ELI_LILLY_AND_COMPANY-CA200805003112

PATIENT
  Age: 37 Year
  Sex: Female

DRUGS (4)
  1. CYMBALTA [Suspect]
     Indication: DEPRESSION
     Dosage: 60 MG, UNK
     Dates: start: 20080423
  2. ATIVAN [Concomitant]
     Indication: PANIC ATTACK
     Dosage: UNK, AS NEEDED
  3. TRAZODONE HCL [Concomitant]
     Indication: SLEEP DISORDER
     Dosage: UNK, AS NEEDED
  4. ALCOHOL [Concomitant]

REACTIONS (1)
  - ARRHYTHMIA [None]
